FAERS Safety Report 24735636 (Version 1)
Quarter: 2024Q4

REPORT INFORMATION
  Report Type: Report from Study
  Country: CA (occurrence: CA)
  Receive Date: 20241216
  Receipt Date: 20241216
  Transmission Date: 20250115
  Serious: No
  Sender: ROCHE
  Company Number: CA-ROCHE-10000155504

PATIENT
  Sex: Female

DRUGS (1)
  1. OCREVUS [Suspect]
     Active Substance: OCRELIZUMAB
     Indication: Relapsing-remitting multiple sclerosis
     Dosage: MORE DOSAGE INFORMATION IS 300 MG AT DAY 0 AND 14, THEN 600 MG EVERY 6 MONTHS
     Route: 042
     Dates: start: 20190208

REACTIONS (6)
  - Influenza [Unknown]
  - COVID-19 [Unknown]
  - Pneumonia [Unknown]
  - Sensitive skin [Recovered/Resolved]
  - Dyspepsia [Unknown]
  - Nasopharyngitis [Recovered/Resolved]
